FAERS Safety Report 15967076 (Version 1)
Quarter: 2019Q1

REPORT INFORMATION
  Report Type: Spontaneous
  Country: US (occurrence: US)
  Receive Date: 20190215
  Receipt Date: 20190215
  Transmission Date: 20190418
  Serious: Yes (Other)
  Sender: FDA-Public Use
  Company Number: US-SA-2019SA039623

PATIENT
  Age: 15 Year
  Sex: Male

DRUGS (19)
  1. BECONASE AQ [Concomitant]
     Active Substance: BECLOMETHASONE DIPROPIONATE MONOHYDRATE
     Dosage: 42 UG IN NOSTRILS
     Route: 045
  2. CELLCEPT [Concomitant]
     Active Substance: MYCOPHENOLATE MOFETIL\MYCOPHENOLATE MOFETIL HYDROCHLORIDE
     Dosage: AS DIRECTED ? SOMETIMES HE IS ON / OFF
  3. EUCRISA [Concomitant]
     Active Substance: CRISABOROLE
     Dosage: UNK UNK, PRN
  4. TRIAMCINOLON [TRIAMCINOLONE] [Concomitant]
  5. RANITIDINE. [Concomitant]
     Active Substance: RANITIDINE
     Dosage: 150 MG 1 X PM
  6. BETAMETH DIPROPIONATE [Concomitant]
  7. XOLAIR [Concomitant]
     Active Substance: OMALIZUMAB
     Dosage: UNK
  8. MUPIROCIN. [Concomitant]
     Active Substance: MUPIROCIN
     Dosage: UNK UNK, QD
     Route: 045
  9. SINGULAIR [Concomitant]
     Active Substance: MONTELUKAST SODIUM
     Dosage: 10 MG, QD
  10. OMEPRAZOLE. [Concomitant]
     Active Substance: OMEPRAZOLE
     Dosage: 40 MG 1X AM
  11. FLOVENT [Concomitant]
     Active Substance: FLUTICASONE PROPIONATE
     Dosage: 2 PUFFS X 2 DAY
  12. CYCLOSPORINE. [Concomitant]
     Active Substance: CYCLOSPORINE
     Dosage: AS DIRECTED ? SOMETIMES HE IS ON / OFF
  13. DUPILUMAB [Suspect]
     Active Substance: DUPILUMAB
     Indication: DERMATITIS ATOPIC
     Dosage: 300 MG, QOW
     Dates: start: 201708, end: 201808
  14. CETRIZINE [Concomitant]
     Active Substance: CETIRIZINE HYDROCHLORIDE
     Dosage: 20 MG X 2 DAY
  15. BENADRYL [Concomitant]
     Active Substance: DIPHENHYDRAMINE HYDROCHLORIDE
     Dosage: UNK UNK, QD
  16. XOLAIR [Concomitant]
     Active Substance: OMALIZUMAB
     Indication: ECZEMA
     Dosage: UNK
  17. PROAIR HFA [Concomitant]
     Active Substance: ALBUTEROL SULFATE
     Dosage: UNK UNK, PRN
  18. HYDROXYZINE [Concomitant]
     Active Substance: HYDROXYZINE HYDROCHLORIDE
     Dosage: 25 MG, PRN
  19. EPIPEN [Concomitant]
     Active Substance: EPINEPHRINE

REACTIONS (11)
  - Myocardial infarction [Unknown]
  - Immune system disorder [Unknown]
  - Angioedema [Unknown]
  - Swelling of eyelid [Unknown]
  - Urticaria [Not Recovered/Not Resolved]
  - Troponin increased [Unknown]
  - Eosinophil count increased [Recovered/Resolved]
  - Anaphylactic reaction [Unknown]
  - Skin mass [Unknown]
  - Chronic spontaneous urticaria [Unknown]
  - Chest pain [Unknown]

NARRATIVE: CASE EVENT DATE: 201806
